FAERS Safety Report 24553313 (Version 1)
Quarter: 2024Q4

REPORT INFORMATION
  Report Type: Report from Study
  Country: US (occurrence: US)
  Receive Date: 20241028
  Receipt Date: 20241028
  Transmission Date: 20250115
  Serious: No
  Sender: ACADIA PHARMACEUTICALS
  Company Number: US-ACADIA PHARMACEUTICALS INC.-ACA-2024-TRF-006219

PATIENT
  Sex: Female

DRUGS (1)
  1. DAYBUE [Suspect]
     Active Substance: TROFINETIDE
     Indication: Rett syndrome
     Dosage: TITRATING  AND ARE GOING UP BY 1-2 ML  AT A TIME
     Route: 048

REACTIONS (2)
  - Mood swings [Not Recovered/Not Resolved]
  - Underdose [Not Recovered/Not Resolved]
